FAERS Safety Report 19990270 (Version 1)
Quarter: 2021Q4

REPORT INFORMATION
  Report Type: Spontaneous
  Country: US (occurrence: US)
  Receive Date: 20211025
  Receipt Date: 20211025
  Transmission Date: 20220303
  Serious: Yes (Other)
  Sender: FDA-Public Use
  Company Number: US-CIPLA LTD.-2021US06984

PATIENT

DRUGS (5)
  1. DIMETHYL FUMARATE [Suspect]
     Active Substance: DIMETHYL FUMARATE
     Indication: Multiple sclerosis
     Dosage: 120 MILLIGRAM, BID, MORNING AND EVENING
     Route: 065
     Dates: start: 202109, end: 2021
  2. DIMETHYL FUMARATE [Suspect]
     Active Substance: DIMETHYL FUMARATE
     Dosage: 240 MILLIGRAM, BID, MORNING AND EVENING
     Route: 065
     Dates: start: 2021, end: 20211006
  3. DIMETHYL FUMARATE [Suspect]
     Active Substance: DIMETHYL FUMARATE
     Dosage: 240 MILLIGRAM, BID, MORNING AND EVENING
     Route: 065
     Dates: start: 20211009, end: 20211012
  4. METHOXSALEN [Concomitant]
     Active Substance: METHOXSALEN
     Indication: Skin cancer
     Dosage: 10 MILLIGRAM, QD, JUST BEFORE THE PUVA TREATMENT, WAS ON AND OFF
     Route: 065
     Dates: start: 1992
  5. PRILOSEC [Concomitant]
     Active Substance: OMEPRAZOLE MAGNESIUM
     Indication: Gastrooesophageal reflux disease
     Dosage: UNK, QD
     Route: 065
     Dates: start: 20210923, end: 202110

REACTIONS (5)
  - Cutaneous T-cell lymphoma [Not Recovered/Not Resolved]
  - Cough [Recovered/Resolved]
  - Abdominal discomfort [Recovered/Resolved]
  - Vomiting [Recovered/Resolved]
  - Nausea [Recovered/Resolved]

NARRATIVE: CASE EVENT DATE: 20210101
